FAERS Safety Report 4798127-8 (Version None)
Quarter: 2005Q4

REPORT INFORMATION
  Report Type: 
  Country: None (occurrence: None)
  Receive Date: 20051014
  Receipt Date: 20051005
  Transmission Date: 20060501
  Serious: Yes (Other)
  Sender: FDA-Public Use
  Company Number: US-BOEHRINGER INGELHEIM PHARMACEUTICALS, INC.-2005-DE-04098GD

PATIENT

DRUGS (2)
  1. CATAPRES [Suspect]
     Indication: DRUG DETOXIFICATION
     Dosage: 0.05 - 0.1 MG EVERY 4 - 6 H, NOT TO EXCEED 0.6 MG TOTAL
     Route: 048
  2. CATAPRES [Suspect]
     Route: 062

REACTIONS (1)
  - PNEUMONIA [None]
